FAERS Safety Report 24001730 (Version 2)
Quarter: 2024Q2

REPORT INFORMATION
  Report Type: Spontaneous
  Country: US (occurrence: US)
  Receive Date: 20240622
  Receipt Date: 20240628
  Transmission Date: 20240715
  Serious: No
  Sender: FDA-Public Use
  Company Number: US-ABBVIE-5807864

PATIENT
  Age: 35 Year
  Sex: Female

DRUGS (1)
  1. LILETTA [Suspect]
     Active Substance: LEVONORGESTREL
     Indication: Product used for unknown indication
     Dosage: TIME INTERVAL: AS NECESSARY: LAST ADMIN DATE JUN 2024
     Route: 015
     Dates: start: 20240614

REACTIONS (3)
  - Discomfort [Unknown]
  - Device expulsion [Unknown]
  - Uterine cervix stenosis [Unknown]

NARRATIVE: CASE EVENT DATE: 20240601
